FAERS Safety Report 7179391-7 (Version None)
Quarter: 2010Q4

REPORT INFORMATION
  Report Type: 
  Country: None (occurrence: None)
  Receive Date: 20101221
  Receipt Date: 20101220
  Transmission Date: 20110411
  Serious: Yes (Hospitalization)
  Sender: FDA-Public Use
  Company Number: AU-SP-2010-03487

PATIENT
  Sex: Female

DRUGS (1)
  1. IMMUCYST [Suspect]
     Indication: IMMUNISATION
     Route: 058
     Dates: start: 20100324, end: 20100324

REACTIONS (7)
  - INCORRECT ROUTE OF DRUG ADMINISTRATION [None]
  - OVERDOSE [None]
  - VACCINATION SITE ABSCESS [None]
  - VACCINATION SITE INDURATION [None]
  - VACCINATION SITE INFECTION [None]
  - VACCINATION SITE ULCER [None]
  - WRONG DRUG ADMINISTERED [None]
